FAERS Safety Report 20817863 (Version 2)
Quarter: 2022Q2

REPORT INFORMATION
  Report Type: Spontaneous
  Country: BR (occurrence: BR)
  Receive Date: 20220512
  Receipt Date: 20220516
  Transmission Date: 20220721
  Serious: Yes (Hospitalization, Other)
  Sender: FDA-Public Use
  Company Number: BR-009507513-2205BRA001912

PATIENT
  Age: 58 Year
  Sex: Female

DRUGS (2)
  1. KEYTRUDA [Suspect]
     Active Substance: PEMBROLIZUMAB
     Indication: Malignant melanoma
     Dosage: 11 CYCLE
     Dates: end: 202110
  2. KEYTRUDA [Suspect]
     Active Substance: PEMBROLIZUMAB
     Indication: Breast cancer
     Dosage: CYCLICAL
     Dates: start: 202203

REACTIONS (11)
  - Confusional state [Recovered/Resolved]
  - Abnormal behaviour [Unknown]
  - Mechanical ventilation [Unknown]
  - Limbic encephalitis [Unknown]
  - Confusional state [Unknown]
  - Gastrointestinal disorder [Unknown]
  - Hypotension [Unknown]
  - Acidosis [Unknown]
  - Diarrhoea [Unknown]
  - Product use in unapproved indication [Unknown]
  - Product prescribing issue [Unknown]

NARRATIVE: CASE EVENT DATE: 20210101
